FAERS Safety Report 16446263 (Version 3)
Quarter: 2021Q3

REPORT INFORMATION
  Report Type: Report from Study
  Country: US (occurrence: US)
  Receive Date: 20190618
  Receipt Date: 20210720
  Transmission Date: 20211014
  Serious: Yes (Hospitalization, Other)
  Sender: FDA-Public Use
  Company Number: US-009507513-1906USA006531

PATIENT
  Age: 77 Year
  Sex: Female

DRUGS (8)
  1. ATORVASTATIN [Concomitant]
     Active Substance: ATORVASTATIN
  2. METFORMIN [Concomitant]
     Active Substance: METFORMIN HYDROCHLORIDE
  3. JANUVIA [Suspect]
     Active Substance: SITAGLIPTIN PHOSPHATE
     Dosage: ONCE DAILY
     Route: 048
  4. ENALAPRIL [Concomitant]
     Active Substance: ENALAPRIL
  5. ELIQUIS [Concomitant]
     Active Substance: APIXABAN
  6. JANUVIA [Suspect]
     Active Substance: SITAGLIPTIN PHOSPHATE
     Indication: DIABETES MELLITUS
     Dosage: 100 MILLIGRAM, QD
     Route: 048
     Dates: start: 201902, end: 20190608
  7. GLIPIZIDE. [Concomitant]
     Active Substance: GLIPIZIDE
  8. AMLODIPINE [Concomitant]
     Active Substance: AMLODIPINE BESYLATE

REACTIONS (5)
  - Malaise [Not Recovered/Not Resolved]
  - Blood glucose increased [Unknown]
  - Nausea [Not Recovered/Not Resolved]
  - Thrombosis [Not Recovered/Not Resolved]
  - Product dose omission issue [Unknown]

NARRATIVE: CASE EVENT DATE: 2019
